FAERS Safety Report 8554448-4 (Version None)
Quarter: 2012Q3

REPORT INFORMATION
  Report Type: 
  Country: None (occurrence: None)
  Receive Date: 20120731
  Receipt Date: 20120726
  Transmission Date: 20120928
  Serious: No
  Sender: FDA-Public Use
  Company Number: US-009507513-1207USA011711

PATIENT

DRUGS (1)
  1. IMPLANON [Suspect]
     Dosage: UNK
     Dates: start: 20110304, end: 20120725

REACTIONS (3)
  - IMPLANT SITE PAIN [None]
  - PRODUCT ADHESION ISSUE [None]
  - DEVICE DISLOCATION [None]
